FAERS Safety Report 4364139-1 (Version None)
Quarter: 2004Q2

REPORT INFORMATION
  Report Type: 
  Country: None (occurrence: None)
  Receive Date: 20040519
  Receipt Date: 20040504
  Transmission Date: 20050107
  Serious: Yes (Other)
  Sender: FDA-Public Use
  Company Number: T04-USA-02082-01

PATIENT
  Age: 60 Year
  Sex: Female
  Weight: 74.8435 kg

DRUGS (5)
  1. ESCITALOPRAM (OPEN LABEL) (ESCITALOPRAM) [Suspect]
     Indication: DEPRESSION
     Dosage: 5 MG QD PO
     Route: 048
     Dates: start: 20040420
  2. ESCITALOPRAM (OPEN LABEL) (ESCITALOPRAM) [Suspect]
     Indication: DEPRESSION
     Dosage: 2.5 MG QD PO
     Route: 048
     Dates: end: 20040419
  3. TRIAMTERENE [Concomitant]
  4. ATENOLOL [Concomitant]
  5. CENESTIN (ESTROGENS CONJUGATED) [Concomitant]

REACTIONS (1)
  - AKATHISIA [None]
